FAERS Safety Report 9698000 (Version 1)
Quarter: 2013Q4

REPORT INFORMATION
  Report Type: Spontaneous
  Country: LY (occurrence: LY)
  Receive Date: 20131120
  Receipt Date: 20131120
  Transmission Date: 20140711
  Serious: Yes (Death)
  Sender: FDA-Public Use
  Company Number: LY-SA-2013SA116897

PATIENT
  Age: 77 Year
  Sex: Female

DRUGS (9)
  1. PLAVIX [Suspect]
     Indication: ANGINA UNSTABLE
     Route: 048
     Dates: start: 20130610, end: 20130907
  2. ASPEGIC [Concomitant]
     Route: 048
     Dates: end: 20130907
  3. DILACOR [Concomitant]
     Route: 048
     Dates: end: 20130907
  4. ATACAND [Concomitant]
     Route: 048
     Dates: end: 20130907
  5. ATOR [Concomitant]
     Route: 048
     Dates: end: 20130907
  6. ALDACTONE [Concomitant]
     Dates: end: 20130907
  7. LASILIX [Concomitant]
     Route: 048
     Dates: end: 20130907
  8. GLUCOPHAGE [Concomitant]
     Route: 048
     Dates: end: 20130907
  9. INEXIUM [Concomitant]
     Route: 048
     Dates: end: 20130907

REACTIONS (1)
  - Sudden death [Fatal]
